FAERS Safety Report 9225707 (Version 1)
Quarter: 2013Q1

REPORT INFORMATION
  Report Type: Spontaneous
  Country: US (occurrence: None)
  Receive Date: 20120914
  Receipt Date: 20120914
  Transmission Date: 20140127
  Serious: Yes (Hospitalization)
  Sender: FDA-Public Use
  Company Number: JPI-P-017833

PATIENT
  Age: 17 Year
  Sex: Female

DRUGS (2)
  1. XYREM(500 MILLIGRAM/MILLILITERS, SOLUTION)(SODIUM OXYBATE) [Suspect]
     Indication: NARCOLEPSY
     Route: 048
  2. UNSPECIFIED ANTIDEPRESSANTS [Concomitant]

REACTIONS (2)
  - Depression [None]
  - Suicidal ideation [None]
